FAERS Safety Report 9819477 (Version 1)
Quarter: 2013Q4

REPORT INFORMATION
  Report Type: Spontaneous
  Country: US (occurrence: None)
  Receive Date: 20131223
  Receipt Date: 20131223
  Transmission Date: 20140711
  Serious: Yes (Other)
  Sender: FDA-Public Use
  Company Number: 220973

PATIENT
  Age: 59 Year
  Sex: Male

DRUGS (1)
  1. PICATO [Suspect]
     Indication: ACTINIC KERATOSIS
     Dosage: 1 IN 1 WK DERMAL
     Dates: start: 20130309

REACTIONS (7)
  - Application site exfoliation [None]
  - Application site pain [None]
  - Drug administration error [None]
  - Inappropriate schedule of drug administration [None]
  - Drug prescribing error [None]
  - Erythema [None]
  - Application site vesicles [None]
